FAERS Safety Report 25763310 (Version 2)
Quarter: 2025Q4

REPORT INFORMATION
  Report Type: Spontaneous
  Country: EU (occurrence: EU)
  Receive Date: 20250905
  Receipt Date: 20251004
  Transmission Date: 20260119
  Serious: Yes (Hospitalization, Other)
  Sender: NOVARTIS
  Company Number: None

PATIENT
  Age: 75 Year
  Sex: Male
  Weight: 77 kg

DRUGS (2)
  1. PAZOPANIB [Suspect]
     Active Substance: PAZOPANIB
     Indication: Metastatic renal cell carcinoma
     Dosage: 200 MG (200MG 1-0-1)
     Route: 048
     Dates: start: 20250516, end: 20250721
  2. OPDIVO [Suspect]
     Active Substance: NIVOLUMAB
     Indication: Non-small cell lung cancer
     Dosage: 240MG I.V. ALLE 2 WOCHEN
     Route: 042
     Dates: start: 20241219, end: 20250424

REACTIONS (3)
  - Nephropathy toxic [Recovered/Resolved with Sequelae]
  - Immune-mediated hepatitis [Unknown]
  - Glomerulonephritis rapidly progressive [Unknown]

NARRATIVE: CASE EVENT DATE: 20250811
